FAERS Safety Report 23819323 (Version 1)
Quarter: 2024Q2

REPORT INFORMATION
  Report Type: Spontaneous
  Country: US (occurrence: US)
  Receive Date: 20240506
  Receipt Date: 20240506
  Transmission Date: 20240716
  Serious: No
  Sender: FDA-Public Use
  Company Number: US-AUROBINDO-AUR-APL-2024-003860

PATIENT
  Age: 81 Year
  Sex: Female
  Weight: 63 kg

DRUGS (1)
  1. DEXTROMETHORPHAN\GUAIFENESIN [Suspect]
     Active Substance: DEXTROMETHORPHAN\GUAIFENESIN
     Indication: Pulmonary congestion
     Dosage: 1 DOSAGE FORM, TWO TIMES A DAY, 02 DAYS AGO
     Route: 048
     Dates: start: 20240115, end: 20240116

REACTIONS (2)
  - Product size issue [Unknown]
  - Product use complaint [Unknown]
